FAERS Safety Report 5524825-4 (Version None)
Quarter: 2007Q4

REPORT INFORMATION
  Report Type: 
  Country: None (occurrence: None)
  Receive Date: 20071116
  Receipt Date: 20071031
  Transmission Date: 20080405
  Serious: Yes (Hospitalization)
  Sender: FDA-Public Use
  Company Number: 2007BI021464

PATIENT
  Age: 42 Year
  Sex: Female

DRUGS (12)
  1. AVONEX [Suspect]
     Indication: RELAPSING-REMITTING MULTIPLE SCLEROSIS
     Dosage: 30 UG;QW;IM
     Route: 030
     Dates: start: 20040101
  2. STEROIDS [Concomitant]
  3. KETAS [Concomitant]
  4. PREDONINE [Concomitant]
  5. DANTRIUM [Concomitant]
  6. TEGRETOL [Concomitant]
  7. RIVOTRIL [Concomitant]
  8. PROPIVERINE HYDROCHLORIDE [Concomitant]
  9. CYANOCOBALAMIN [Concomitant]
  10. ADETPHOS [Concomitant]
  11. RANITIDINE HCL [Concomitant]
  12. ALFACALCIDOL [Concomitant]

REACTIONS (3)
  - HYPOKALAEMIA [None]
  - PYREXIA [None]
  - URINE KETONE BODY PRESENT [None]
